FAERS Safety Report 11758440 (Version 1)
Quarter: 2015Q4

REPORT INFORMATION
  Report Type: Spontaneous
  Country: US (occurrence: None)
  Receive Date: 20151119
  Receipt Date: 20151119
  Transmission Date: 20160304
  Serious: Yes (Life-Threatening)
  Sender: FDA-Public Use
  Company Number: IT-ALSI-201500231

PATIENT
  Age: 71 Year
  Sex: Female

DRUGS (1)
  1. OXYGEN OSSIGENO AIR LIQUIDE SANITA GAS MEDICINALE COMPRESSO [Suspect]
     Active Substance: OXYGEN
     Indication: PRODUCT USED FOR UNKNOWN INDICATION
     Dosage: RESPIRATORY
     Route: 055

REACTIONS (6)
  - Product physical issue [None]
  - Underdose [None]
  - Device occlusion [None]
  - Device malfunction [None]
  - Product quality issue [None]
  - Oxygen saturation decreased [None]

NARRATIVE: CASE EVENT DATE: 20151006
